FAERS Safety Report 9817697 (Version 2)
Quarter: 2014Q2

REPORT INFORMATION
  Report Type: Spontaneous
  Country: US (occurrence: US)
  Receive Date: 20140115
  Receipt Date: 20140429
  Transmission Date: 20141212
  Serious: Yes (Death)
  Sender: FDA-Public Use
  Company Number: US-PAR PHARMACEUTICAL, INC-2014SCPR007848

PATIENT
  Sex: 0

DRUGS (1)
  1. CALCITONIN [Suspect]
     Indication: OSTEOPOROSIS
     Dosage: 1 SPR, OD, IN ALTERNATE NOSTRIL
     Route: 045

REACTIONS (3)
  - Death [Fatal]
  - Myocardial infarction [Fatal]
  - Product quality issue [Unknown]
